FAERS Safety Report 7884822-0 (Version None)
Quarter: 2011Q4

REPORT INFORMATION
  Report Type: 
  Country: None (occurrence: None)
  Receive Date: 20111102
  Receipt Date: 20111024
  Transmission Date: 20120403
  Serious: Yes (Other)
  Sender: FDA-Public Use
  Company Number: PHHY2011BR95184

PATIENT
  Sex: Female

DRUGS (1)
  1. DIOVAN HCT [Suspect]
     Indication: BLOOD PRESSURE
     Dosage: 1 DF(320/12. 5MG) QD
     Route: 048

REACTIONS (5)
  - VARICOSE VEIN [None]
  - OSTEOARTHRITIS [None]
  - FALL [None]
  - MASS [None]
  - GAIT DISTURBANCE [None]
